FAERS Safety Report 19877233 (Version 1)
Quarter: 2021Q3

REPORT INFORMATION
  Report Type: Spontaneous
  Country: FR (occurrence: FR)
  Receive Date: 20210923
  Receipt Date: 20210923
  Transmission Date: 20211014
  Serious: Yes (Death, Other)
  Sender: FDA-Public Use
  Company Number: FR-ABBVIE-21K-056-4090932-00

PATIENT
  Age: 35 Year
  Sex: Male

DRUGS (5)
  1. DEPAKINE [Suspect]
     Active Substance: VALPROATE SODIUM
     Indication: PRODUCT ADMINISTRATION ERROR
     Dosage: 500 MG, TOTAL
     Route: 048
     Dates: start: 20180716, end: 20180716
  2. LEPTICUR [Suspect]
     Active Substance: TROPATEPINE HYDROCHLORIDE
     Indication: PRODUCT ADMINISTRATION ERROR
     Dosage: 10 MG, TOTAL
     Route: 048
     Dates: start: 20180716, end: 20180716
  3. CLOZAPINE. [Suspect]
     Active Substance: CLOZAPINE
     Indication: PRODUCT ADMINISTRATION ERROR
     Dosage: 100 MG, TOTAL
     Route: 048
     Dates: start: 20180716, end: 20180716
  4. DIAZEPAM. [Suspect]
     Active Substance: DIAZEPAM
     Indication: PRODUCT ADMINISTRATION ERROR
     Dosage: 10 MG, TOTAL
     Route: 048
     Dates: start: 20180716, end: 20180716
  5. HALDOL [Suspect]
     Active Substance: HALOPERIDOL
     Indication: PRODUCT ADMINISTRATION ERROR
     Dosage: 5 MG, TOTAL
     Route: 048
     Dates: start: 20180716, end: 20180716

REACTIONS (3)
  - Death [Fatal]
  - Product administration error [Unknown]
  - Somnolence [Not Recovered/Not Resolved]

NARRATIVE: CASE EVENT DATE: 20180716
